FAERS Safety Report 6087596-1 (Version None)
Quarter: 2009Q1

REPORT INFORMATION
  Report Type: 
  Country: None (occurrence: None)
  Receive Date: 20090223
  Receipt Date: 20090218
  Transmission Date: 20090719
  Serious: No
  Sender: FDA-Public Use
  Company Number: US-JNJFOC-20090204792

PATIENT
  Sex: Male
  Weight: 99.79 kg

DRUGS (6)
  1. FENTANYL TRANSDERMAL SYSTEM [Suspect]
     Indication: SPINAL OPERATION
     Route: 062
  2. LORTAB [Concomitant]
     Indication: BREAKTHROUGH PAIN
     Route: 048
  3. SOMA [Concomitant]
     Indication: MUSCLE SPASMS
     Route: 048
  4. VALIUM [Concomitant]
     Indication: MUSCLE SPASMS
     Dosage: AT NIGHT
     Route: 048
  5. LISINOPRIL [Concomitant]
     Indication: HYPERTENSION
     Route: 048
  6. CLARITIN [Concomitant]
     Indication: MULTIPLE ALLERGIES
     Route: 048

REACTIONS (4)
  - DIARRHOEA [None]
  - HYPERHIDROSIS [None]
  - MUSCLE SPASMS [None]
  - WRONG TECHNIQUE IN DRUG USAGE PROCESS [None]
